FAERS Safety Report 9511486 (Version 1)
Quarter: 2013Q1

REPORT INFORMATION
  Report Type: Spontaneous
  Country: US (occurrence: None)
  Receive Date: 20130305
  Receipt Date: 20130305
  Transmission Date: 20140127
  Serious: Yes (Other)
  Sender: FDA-Public Use
  Company Number: 163-21880-12051951

PATIENT
  Age: 78 Year
  Sex: Female

DRUGS (12)
  1. REVLIMID [Suspect]
     Indication: PLASMA CELL MYELOMA
     Dosage: 25 MG, 21 IN 21 D, PO
     Route: 048
     Dates: start: 20120430
  2. MAGENESIUM (MAGNESIUM) (UNKNOWN) [Concomitant]
  3. PANTOPRAZOLE SODIUM (PANTOPRAZOLE SODIUM) (UNKNOWN) [Concomitant]
  4. VALACYCLOVIR HCL (VALACICLOVIR) (UNKNOWN) [Concomitant]
  5. ZINC (ZINC) (UNKNOWN) [Concomitant]
  6. COQ10 (UBIDECARENONE) (UNKNOWN) [Concomitant]
  7. GARLIC (GARLIC) (UNKNOWN) [Concomitant]
  8. HYDROCORTISONOE (HYDROCORTISONE) (UNKNOWN) [Concomitant]
  9. LECITHIN (LECITHIN) (UNKNOWN) [Concomitant]
  10. GABAPENTIN (GABAPENTIN) (UNKNOWN) (GABAPENTIN) [Concomitant]
  11. TYLENOL (PARACETAMOL) (UNKNOWN) [Concomitant]
  12. ALOE VERA (ALOE VERA EXTRACT) (UNKNOWN) [Concomitant]

REACTIONS (4)
  - Rash generalised [None]
  - Pruritus [None]
  - Rash [None]
  - White blood cell count decreased [None]
